FAERS Safety Report 5073924-2 (Version None)
Quarter: 2006Q3

REPORT INFORMATION
  Report Type: 
  Country: None (occurrence: None)
  Receive Date: 20060808
  Receipt Date: 20050609
  Transmission Date: 20061208
  Serious: No
  Sender: FDA-Public Use
  Company Number: US-AMGEN-US137729

PATIENT
  Age: 55 Year
  Sex: Female

DRUGS (2)
  1. EPOGEN [Suspect]
     Indication: DIALYSIS
     Route: 042
  2. ARANESP [Concomitant]
     Indication: DIALYSIS

REACTIONS (3)
  - CHILLS [None]
  - DIARRHOEA [None]
  - PYREXIA [None]
